FAERS Safety Report 6620257-6 (Version None)
Quarter: 2010Q1

REPORT INFORMATION
  Report Type: 
  Country: None (occurrence: None)
  Receive Date: 20100308
  Receipt Date: 20100308
  Transmission Date: 20100710
  Serious: Yes (Death)
  Sender: FDA-Public Use
  Company Number: None

PATIENT
  Age: 74 Year
  Sex: Male

DRUGS (11)
  1. LETAIRIS [Suspect]
     Indication: PULMONARY HYPERTENSION
     Dosage: 5MG DAILY ORALLY
     Route: 048
     Dates: start: 20100210, end: 20100303
  2. LASIX [Concomitant]
  3. WARFARIN [Concomitant]
  4. ACETAZOLAMIDE [Concomitant]
  5. ADVAIR DISKUS 100/50 [Concomitant]
  6. COMBIVENT [Concomitant]
  7. DIGOXIN [Concomitant]
  8. FLOMAX [Concomitant]
  9. INSULIN [Concomitant]
  10. LOVASTATIN [Concomitant]
  11. REVATIO [Concomitant]

REACTIONS (1)
  - NO ADVERSE EVENT [None]
